FAERS Safety Report 15865496 (Version 1)
Quarter: 2019Q1

REPORT INFORMATION
  Report Type: Spontaneous
  Country: US (occurrence: US)
  Receive Date: 20190125
  Receipt Date: 20190125
  Transmission Date: 20190417
  Serious: No
  Sender: FDA-Public Use
  Company Number: US-AMGEN-USASP2019010922

PATIENT
  Age: 26 Month
  Weight: 13.5 kg

DRUGS (1)
  1. EPOGEN [Suspect]
     Active Substance: ERYTHROPOIETIN
     Indication: PRODUCT USED FOR UNKNOWN INDICATION
     Dosage: 500 MUG/KG, 2 TIMES/WK
     Route: 058

REACTIONS (1)
  - Off label use [Unknown]
